FAERS Safety Report 7363652-2 (Version None)
Quarter: 2011Q1

REPORT INFORMATION
  Report Type: 
  Country: None (occurrence: None)
  Receive Date: 20110321
  Receipt Date: 20110310
  Transmission Date: 20110831
  Serious: Yes (Hospitalization)
  Sender: FDA-Public Use
  Company Number: US-NOVOPROD-325068

PATIENT
  Age: 10 Year
  Sex: Female
  Weight: 28.5 kg

DRUGS (1)
  1. NORDITROPIN NORDIFLEX [Suspect]
     Dosage: 1.8 MG, QD
     Route: 058
     Dates: start: 20091024

REACTIONS (1)
  - CHOLELITHIASIS [None]
